FAERS Safety Report 24857629 (Version 1)
Quarter: 2025Q1

REPORT INFORMATION
  Report Type: Spontaneous
  Country: US (occurrence: US)
  Receive Date: 20250117
  Receipt Date: 20250117
  Transmission Date: 20250409
  Serious: No
  Sender: PRAGMA PHARMACEUTICALS
  Company Number: US-PRAGMA-2024-US-030050

PATIENT
  Sex: Female

DRUGS (1)
  1. KEFLEX [Suspect]
     Active Substance: CEPHALEXIN
     Indication: Product use in unapproved indication

REACTIONS (2)
  - Rash [Unknown]
  - Urticaria [Unknown]
